FAERS Safety Report 23319175 (Version 1)
Quarter: 2023Q4

REPORT INFORMATION
  Report Type: Spontaneous
  Country: US (occurrence: US)
  Receive Date: 20231220
  Receipt Date: 20231220
  Transmission Date: 20240109
  Serious: No
  Sender: FDA-Public Use
  Company Number: US-JNJFOC-20231175754

PATIENT
  Age: 85 Year
  Sex: Female

DRUGS (2)
  1. WOMENS ROGAINE [Suspect]
     Active Substance: MINOXIDIL
     Indication: Alopecia
     Dosage: FILL OUT THE LINE OF THE DROPPER
     Route: 061
     Dates: start: 20231127
  2. WOMENS ROGAINE [Suspect]
     Active Substance: MINOXIDIL
     Dosage: FILL OUT THE LINE OF THE DROPPER
     Route: 061

REACTIONS (2)
  - Alopecia [Not Recovered/Not Resolved]
  - Inappropriate schedule of product administration [Unknown]
